FAERS Safety Report 21383778 (Version 1)
Quarter: 2022Q3

REPORT INFORMATION
  Report Type: Report from Study
  Country: CA (occurrence: CA)
  Receive Date: 20220928
  Receipt Date: 20220928
  Transmission Date: 20221026
  Serious: Yes (Other)
  Sender: FDA-Public Use
  Company Number: CA-NOVARTISPH-PHHY2018CA042404

PATIENT
  Sex: Male

DRUGS (6)
  1. COSENTYX [Suspect]
     Active Substance: SECUKINUMAB
     Indication: Psoriasis
     Dosage: UNK (EVERY 8 WEEKS)
     Route: 058
     Dates: start: 20220721
  2. METHOTREXATE [Suspect]
     Active Substance: METHOTREXATE
     Indication: Product used for unknown indication
     Route: 065
  3. ACITRETIN [Concomitant]
     Active Substance: ACITRETIN
     Indication: Product used for unknown indication
     Route: 065
  4. BETAMETHASONE\CALCIPOTRIENE [Concomitant]
     Active Substance: BETAMETHASONE\CALCIPOTRIENE
     Indication: Product used for unknown indication
     Route: 065
  5. LYDERM [Concomitant]
     Indication: Product used for unknown indication
     Route: 065
  6. TIAMOL [Concomitant]
     Indication: Product used for unknown indication
     Route: 065

REACTIONS (3)
  - Retinal detachment [Unknown]
  - Upper respiratory tract infection [Recovering/Resolving]
  - Inappropriate schedule of product administration [Unknown]
